FAERS Safety Report 21346561 (Version 1)
Quarter: 2022Q3

REPORT INFORMATION
  Report Type: Spontaneous
  Country: US (occurrence: US)
  Receive Date: 20220917
  Receipt Date: 20220917
  Transmission Date: 20221027
  Serious: No
  Sender: FDA-Public Use
  Company Number: US-LUPIN PHARMACEUTICALS INC.-2022-11105

PATIENT
  Age: 7 Year
  Sex: Male

DRUGS (2)
  1. DEXMETHYLPHENIDATE [Suspect]
     Active Substance: DEXMETHYLPHENIDATE
     Indication: Behaviour disorder
     Dosage: UNK (EXTENDED-RELEASE)
     Route: 065
  2. GUANFACINE [Suspect]
     Active Substance: GUANFACINE
     Indication: Behaviour disorder
     Dosage: UNK
     Route: 065

REACTIONS (1)
  - Sweat test abnormal [Recovering/Resolving]
